FAERS Safety Report 14200558 (Version 2)
Quarter: 2017Q4

REPORT INFORMATION
  Report Type: Spontaneous
  Country: US (occurrence: US)
  Receive Date: 20171117
  Receipt Date: 20171215
  Transmission Date: 20180321
  Serious: Yes (Other)
  Sender: FDA-Public Use
  Company Number: US-NOVOPROD-533130

PATIENT
  Age: 58 Year
  Sex: Female
  Weight: 68.27 kg

DRUGS (4)
  1. LEVEMIR [Suspect]
     Active Substance: INSULIN DETEMIR
     Dosage: 10 U, QD
     Route: 058
     Dates: start: 201702
  2. LEVEMIR [Suspect]
     Active Substance: INSULIN DETEMIR
     Indication: TYPE 1 DIABETES MELLITUS
     Dosage: 14 U, QD BEFORE BEDTIME
     Route: 058
     Dates: start: 201701, end: 201702
  3. LEVEMIR [Suspect]
     Active Substance: INSULIN DETEMIR
     Dosage: 8 U, QD BEFORE BEDTIME
     Route: 058
     Dates: start: 201702, end: 201702
  4. NOVOLOG [Suspect]
     Active Substance: INSULIN ASPART
     Indication: TYPE 1 DIABETES MELLITUS
     Dosage: SLIDING SCALE
     Route: 058
     Dates: start: 201701

REACTIONS (3)
  - Blood glucose increased [Not Recovered/Not Resolved]
  - Hypoglycaemic unconsciousness [Recovered/Resolved]
  - Blood glucose decreased [Recovering/Resolving]

NARRATIVE: CASE EVENT DATE: 201701
